FAERS Safety Report 16196503 (Version 1)
Quarter: 2020Q3

REPORT INFORMATION
  Report Type: Report from Study
  Country: FR (occurrence: FR)
  Receive Date: 20190415
  Receipt Date: 20190415
  Transmission Date: 20201104
  Serious: Yes (Hospitalization)
  Sender: FDA-Public Use
  Company Number: FR-ASTRAZENECA-2019SE45897

PATIENT
  Age: 72 Year
  Sex: Male
  Weight: 63.9 kg

DRUGS (2)
  1. TREMELIMUMAB. [Suspect]
     Active Substance: TREMELIMUMAB
     Indication: GASTRIC CANCER
     Route: 042
     Dates: start: 20190228, end: 20190228
  2. DURVALUMAB. [Suspect]
     Active Substance: DURVALUMAB
     Indication: GASTRIC CANCER
     Route: 042
     Dates: start: 20190228, end: 20190228

REACTIONS (1)
  - Guillain-Barre syndrome [Recovering/Resolving]

NARRATIVE: CASE EVENT DATE: 20190320
